FAERS Safety Report 25235299 (Version 1)
Quarter: 2025Q2

REPORT INFORMATION
  Report Type: Spontaneous
  Country: US (occurrence: None)
  Receive Date: 20250423
  Receipt Date: 20250423
  Transmission Date: 20250716
  Serious: Yes (Other)
  Sender: FDA-CTU
  Company Number: None

PATIENT
  Age: 49 Year
  Sex: Female
  Weight: 63 kg

DRUGS (1)
  1. QUETIAPINE FUMARATE [Suspect]
     Active Substance: QUETIAPINE FUMARATE
     Indication: Product dispensing error
     Dosage: OTHER QUANTITY : 1 TABLET(S);?FREQUENCY : AT BEDTIME;?
     Route: 048
     Dates: start: 20250108, end: 20250109

REACTIONS (8)
  - Wrong patient received product [None]
  - Wrong product administered [None]
  - Fatigue [None]
  - Disorientation [None]
  - Loss of consciousness [None]
  - Impaired driving ability [None]
  - Malaise [None]
  - Treatment delayed [None]

NARRATIVE: CASE EVENT DATE: 20250108
